FAERS Safety Report 20008441 (Version 2)
Quarter: 2021Q4

REPORT INFORMATION
  Report Type: Spontaneous
  Country: RO (occurrence: RO)
  Receive Date: 20211029
  Receipt Date: 20211130
  Transmission Date: 20220303
  Serious: Yes (Death, Other)
  Sender: FDA-Public Use
  Company Number: RO-SUN PHARMACEUTICAL INDUSTRIES LTD-2021RR-316113

PATIENT
  Age: 73 Year
  Sex: Male

DRUGS (1)
  1. GEMCITABINE HYDROCHLORIDE [Suspect]
     Active Substance: GEMCITABINE HYDROCHLORIDE
     Indication: Adenocarcinoma pancreas
     Dosage: UNK
     Route: 065

REACTIONS (1)
  - Drug ineffective [Fatal]
